FAERS Safety Report 8230952-3 (Version None)
Quarter: 2012Q1

REPORT INFORMATION
  Report Type: 
  Country: None (occurrence: None)
  Receive Date: 20120323
  Receipt Date: 20120312
  Transmission Date: 20120608
  Serious: Yes (Other)
  Sender: FDA-Public Use
  Company Number: US-ELI_LILLY_AND_COMPANY-US201203004290

PATIENT
  Age: 43 Year
  Sex: Female

DRUGS (6)
  1. ELAVIL [Concomitant]
     Indication: INSOMNIA
     Dosage: 25 DF, BID
  2. BONIVA [Concomitant]
     Indication: OSTEOPOROSIS
     Dosage: 150 MG, MONTHLY (1/M)
  3. CYMBALTA [Suspect]
     Dosage: 60 MG, UNK
     Dates: start: 20111001, end: 20120201
  4. ATENOLOL [Concomitant]
     Indication: SUPRAVENTRICULAR TACHYCARDIA
     Dosage: 25 DF, QD
  5. XANAX XR [Concomitant]
     Indication: ANXIETY
     Dosage: 2 MG, QD
  6. XANAX [Concomitant]
     Indication: ANXIETY
     Dosage: 1 MG, BID

REACTIONS (2)
  - EXCORIATION [None]
  - RASH PAPULAR [None]
